FAERS Safety Report 7356000-5 (Version None)
Quarter: 2011Q1

REPORT INFORMATION
  Report Type: 
  Country: None (occurrence: None)
  Receive Date: 20110316
  Receipt Date: 20101215
  Transmission Date: 20110831
  Serious: No
  Sender: FDA-Public Use
  Company Number: US-ABBOTT-10P-163-0692162-00

PATIENT
  Sex: Female
  Weight: 91.254 kg

DRUGS (3)
  1. TRILIPIX [Suspect]
     Indication: BLOOD TRIGLYCERIDES INCREASED
     Dates: start: 20101101
  2. UNKNOWN BLOOD PRESSURE MEDICATION [Concomitant]
     Indication: HYPERTENSION
  3. UNKNOWN DIABETIC MEDICATION [Concomitant]
     Indication: DIABETES MELLITUS

REACTIONS (1)
  - GLYCOSYLATED HAEMOGLOBIN INCREASED [None]
